FAERS Safety Report 12996824 (Version 2)
Quarter: 2016Q4

REPORT INFORMATION
  Report Type: Spontaneous
  Country: US (occurrence: US)
  Receive Date: 20161205
  Receipt Date: 20161228
  Transmission Date: 20170207
  Serious: No
  Sender: FDA-Public Use
  Company Number: US-009507513-1612USA000605

PATIENT

DRUGS (1)
  1. NEXPLANON [Suspect]
     Active Substance: ETONOGESTREL
     Dosage: 1 IMPLANT/3 YEARS
     Route: 059

REACTIONS (3)
  - Complication of device insertion [Unknown]
  - No adverse event [Unknown]
  - Product quality issue [Unknown]
